FAERS Safety Report 9750649 (Version 1)
Quarter: 2013Q4

REPORT INFORMATION
  Report Type: Spontaneous
  Country: US (occurrence: US)
  Receive Date: 20131212
  Receipt Date: 20131212
  Transmission Date: 20140711
  Serious: No
  Sender: FDA-Public Use
  Company Number: US-BIOGENIDEC-2013BI099005

PATIENT
  Sex: Female

DRUGS (7)
  1. TECFIDERA [Suspect]
     Indication: MULTIPLE SCLEROSIS
     Route: 048
     Dates: start: 20130919
  2. ABILIFY [Concomitant]
  3. TOPAMAX [Concomitant]
  4. WELLBUTRIN [Concomitant]
  5. LORAZEPAM [Concomitant]
  6. PLAQUENIL [Concomitant]
  7. OXYCODONE [Concomitant]

REACTIONS (2)
  - Insomnia [Unknown]
  - Anxiety [Unknown]
